FAERS Safety Report 13819349 (Version 2)
Quarter: 2018Q1

REPORT INFORMATION
  Report Type: Report from Study
  Country: US (occurrence: US)
  Receive Date: 20170731
  Receipt Date: 20180201
  Transmission Date: 20180508
  Serious: No
  Sender: FDA-Public Use
  Company Number: US-EXELIXIS-CABO-17008484

PATIENT
  Sex: Female

DRUGS (4)
  1. RANITIDINE. [Concomitant]
     Active Substance: RANITIDINE
  2. TYLENOL WITH CODEINE [Concomitant]
     Active Substance: ACETAMINOPHEN\CODEINE PHOSPHATE
  3. CABOMETYX [Suspect]
     Active Substance: CABOZANTINIB S-MALATE
     Indication: RENAL CANCER
     Dosage: 60 MG, QD
     Route: 048
     Dates: start: 20170211
  4. METFORMIN [Concomitant]
     Active Substance: METFORMIN HYDROCHLORIDE

REACTIONS (8)
  - Feeding disorder [Not Recovered/Not Resolved]
  - Oral pain [Unknown]
  - Blister [Recovered/Resolved]
  - Stomatitis [Not Recovered/Not Resolved]
  - Pain in extremity [Unknown]
  - Peripheral swelling [Unknown]
  - Dry skin [Unknown]
  - Fatigue [Unknown]
